FAERS Safety Report 7001178-6 (Version None)
Quarter: 2010Q3

REPORT INFORMATION
  Report Type: 
  Country: None (occurrence: None)
  Receive Date: 20100920
  Receipt Date: 20100701
  Transmission Date: 20110219
  Serious: No
  Sender: FDA-Public Use
  Company Number: US-ASTRAZENECA-2007UW25197

PATIENT
  Age: 60 Year
  Sex: Female
  Weight: 74.4 kg

DRUGS (22)
  1. SEROQUEL [Suspect]
     Indication: ANXIETY
     Dosage: 100 MG TO 200 MG
     Route: 048
     Dates: start: 19920101
  2. SEROQUEL [Suspect]
     Indication: DEPRESSION
     Dosage: 100 MG TO 200 MG
     Route: 048
     Dates: start: 19920101
  3. SEROQUEL [Suspect]
     Indication: INSOMNIA
     Dosage: 100 MG TO 200 MG
     Route: 048
     Dates: start: 19920101
  4. SEROQUEL [Suspect]
     Dosage: 100MG - 200MG
     Route: 048
     Dates: start: 20040401, end: 20070501
  5. SEROQUEL [Suspect]
     Dosage: 100MG - 200MG
     Route: 048
     Dates: start: 20040401, end: 20070501
  6. SEROQUEL [Suspect]
     Dosage: 100MG - 200MG
     Route: 048
     Dates: start: 20040401, end: 20070501
  7. SEROQUEL [Suspect]
     Route: 048
     Dates: start: 20041110, end: 20070504
  8. SEROQUEL [Suspect]
     Route: 048
     Dates: start: 20041110, end: 20070504
  9. SEROQUEL [Suspect]
     Route: 048
     Dates: start: 20041110, end: 20070504
  10. SEROQUEL [Suspect]
     Route: 048
     Dates: start: 20050404
  11. SEROQUEL [Suspect]
     Route: 048
     Dates: start: 20050404
  12. SEROQUEL [Suspect]
     Route: 048
     Dates: start: 20050404
  13. DEPAKOTE [Concomitant]
  14. ZYPREXA [Concomitant]
  15. ALBUTEROL [Concomitant]
  16. LIPITOR [Concomitant]
  17. HYDROCHLOROTHIAZIDE [Concomitant]
  18. AMBIEN [Concomitant]
  19. KLONOPIN [Concomitant]
     Dosage: 0.5, 1 MG DISPENSED
     Route: 048
     Dates: start: 20050407
  20. SERTRALINE HYDROCHLORIDE [Concomitant]
     Route: 048
     Dates: start: 20050407
  21. HYDROCODONE BITARTRATE AND ACETAMINOPHEN [Concomitant]
     Dosage: 5 - 500 MG
     Route: 048
     Dates: start: 20050407
  22. GEODON [Concomitant]

REACTIONS (4)
  - ASTHMA [None]
  - KNEE OPERATION [None]
  - PNEUMONIA [None]
  - TYPE 2 DIABETES MELLITUS [None]
